FAERS Safety Report 6490710-7 (Version None)
Quarter: 2009Q4

REPORT INFORMATION
  Report Type: 
  Country: None (occurrence: None)
  Receive Date: 20091211
  Receipt Date: 20091203
  Transmission Date: 20100525
  Serious: Yes (Other)
  Sender: FDA-Public Use
  Company Number: B0603509A

PATIENT
  Sex: Male
  Weight: 42 kg

DRUGS (4)
  1. RELENZA [Suspect]
     Indication: INFLUENZA
     Dosage: 10MG TWICE PER DAY
     Route: 055
     Dates: start: 20091026
  2. TAMIFLU [Concomitant]
     Indication: INFLUENZA
     Dosage: 75MG TWICE PER DAY
     Route: 048
     Dates: start: 20091025, end: 20091025
  3. HUSTAZOL [Concomitant]
     Indication: COUGH
     Dosage: 10MG THREE TIMES PER DAY
     Route: 048
     Dates: start: 20091026, end: 20091102
  4. MUCODYNE [Concomitant]
     Indication: PRODUCTIVE COUGH
     Dosage: 250MG THREE TIMES PER DAY
     Route: 048
     Dates: start: 20091026, end: 20091102

REACTIONS (6)
  - ABNORMAL BEHAVIOUR [None]
  - AGGRESSION [None]
  - AMNESIA [None]
  - CRYING [None]
  - DELIRIUM [None]
  - PYREXIA [None]
